FAERS Safety Report 10173465 (Version 4)
Quarter: 2014Q2

REPORT INFORMATION
  Report Type: Report from Study
  Country: US (occurrence: US)
  Receive Date: 20140515
  Receipt Date: 20140624
  Transmission Date: 20141212
  Serious: Yes (Death, Life-Threatening, Hospitalization)
  Sender: FDA-Public Use
  Company Number: US-TEVA-481768USA

PATIENT
  Age: 1 Year
  Sex: Male
  Weight: 10.3 kg

DRUGS (10)
  1. LESTAURTINIB [Suspect]
     Indication: ACUTE LYMPHOCYTIC LEUKAEMIA
     Dosage: LAST DOSE PRIOR TO EVENT 11-MAY-2014
     Dates: start: 20130424
  2. ETOPOSIDE [Suspect]
     Indication: ACUTE LYMPHOCYTIC LEUKAEMIA
     Dosage: LAST DOSE PRIOR TO EVENT 12-APR-2014
     Dates: start: 20130424
  3. MERCAPTOPURINE [Suspect]
     Indication: ACUTE LYMPHOCYTIC LEUKAEMIA
     Dosage: LAST DOSE PRIOR TO EVENT 07-APR-2014
     Dates: start: 20130424
  4. METHOTREXATE [Suspect]
     Indication: ACUTE LYMPHOCYTIC LEUKAEMIA
     Dosage: LAST DOSE PRIOR TO EVENT 01-APR-2014
     Dates: start: 20130424
  5. VINCRISTINE [Suspect]
     Indication: ACUTE LYMPHOCYTIC LEUKAEMIA
     Dosage: LAST DOSE PRIOR TO EVENT 18-MAR-2014
     Dates: start: 20130424
  6. CYCLOPHOSPHAMIDE [Suspect]
     Indication: ACUTE LYMPHOCYTIC LEUKAEMIA
     Dosage: LAST DOSE PRIOR TO EVENT 12-APR-2014
     Dates: start: 20130424
  7. CYTARABINE [Suspect]
     Indication: ACUTE LYMPHOCYTIC LEUKAEMIA
     Dosage: LAST DOSE PRIOR TO EVENT 02-MAY-2014
     Dates: start: 20130424
  8. DEXAMETHASONE [Suspect]
     Indication: ACUTE LYMPHOCYTIC LEUKAEMIA
     Dosage: LAST DOSE PRIOR TO EVENT 22-MAR-2014
     Dates: start: 20130424
  9. REGLAN [Suspect]
     Dates: start: 20140510
  10. AMPHOTERICIN [Suspect]

REACTIONS (18)
  - Endocarditis [Fatal]
  - Blood bilirubin increased [Unknown]
  - Atelectasis [Unknown]
  - Renal failure acute [Unknown]
  - Device related infection [Unknown]
  - Ascites [Unknown]
  - Blood creatinine increased [Unknown]
  - Pyrexia [Not Recovered/Not Resolved]
  - Hypoalbuminaemia [Unknown]
  - Hypocalcaemia [Unknown]
  - Hypoglycaemia [Recovered/Resolved]
  - Hypophosphataemia [Unknown]
  - Hypotension [Unknown]
  - Hypokalaemia [Unknown]
  - Neutropenia [Not Recovered/Not Resolved]
  - Respiratory failure [Unknown]
  - Cerebrovascular accident [Unknown]
  - Embolism [Unknown]
